FAERS Safety Report 5867260-1 (Version None)
Quarter: 2008Q3

REPORT INFORMATION
  Report Type: 
  Country: None (occurrence: None)
  Receive Date: 20080902
  Receipt Date: 20080822
  Transmission Date: 20090109
  Serious: Yes (Other)
  Sender: FDA-Public Use
  Company Number: US-WYE-H04978908

PATIENT
  Sex: Male
  Weight: 67 kg

DRUGS (3)
  1. BENEFIX [Suspect]
     Indication: HAEMOPHILIA
     Dosage: 60-70 IU/KG TWICE TO THREE PER A WEEK/PROPHYLAXIS
     Route: 042
     Dates: start: 19950715, end: 20030815
  2. BENEFIX [Suspect]
     Dosage: 60-65 IU/KG TWICE A WEEK
     Route: 042
     Dates: start: 20031201, end: 20060901
  3. BENEFIX [Suspect]
     Dosage: 50-60 IU/KG TWICE WEEKLY
     Route: 042
     Dates: start: 20070305

REACTIONS (5)
  - BACK PAIN [None]
  - CHEST DISCOMFORT [None]
  - HYPERSENSITIVITY [None]
  - PARAESTHESIA [None]
  - VISION BLURRED [None]
